FAERS Safety Report 17175470 (Version 2)
Quarter: 2020Q1

REPORT INFORMATION
  Report Type: Spontaneous
  Country: US (occurrence: US)
  Receive Date: 20191219
  Receipt Date: 20200221
  Transmission Date: 20200409
  Serious: Yes (Hospitalization)
  Sender: FDA-Public Use
  Company Number: NVSC2019US072217

PATIENT
  Age: 43 Year
  Sex: Female

DRUGS (1)
  1. COSENTYX [Suspect]
     Active Substance: SECUKINUMAB
     Indication: INFLAMMATORY BOWEL DISEASE
     Dosage: 300 MG, QMO
     Route: 058

REACTIONS (2)
  - Product use in unapproved indication [Unknown]
  - Inflammatory bowel disease [Recovering/Resolving]
